FAERS Safety Report 12184456 (Version 1)
Quarter: 2016Q1

REPORT INFORMATION
  Report Type: Spontaneous
  Country: US (occurrence: US)
  Receive Date: 20160316
  Receipt Date: 20160316
  Transmission Date: 20160526
  Serious: Yes (Other)
  Sender: FDA-Public Use
  Company Number: US-JNJFOC-20160221710

PATIENT
  Age: 33 Year
  Sex: Male
  Weight: 69.85 kg

DRUGS (3)
  1. HAWTHORN [Suspect]
     Active Substance: CRATAEGUS LAEVIGATA FRUIT
     Indication: NUTRITIONAL SUPPLEMENTATION
     Dosage: 565 MG 1 CAPSULE, ONCE A DAY AND HE TOOK 1 CAPSULE, TWICE ON 06-DEC-2015.
     Route: 048
     Dates: start: 20151205, end: 20151206
  2. TYLENOL [Suspect]
     Active Substance: ACETAMINOPHEN
     Indication: PRODUCT USED FOR UNKNOWN INDICATION
  3. TYLENOL [Suspect]
     Active Substance: ACETAMINOPHEN
     Route: 065

REACTIONS (6)
  - Heart rate increased [Unknown]
  - Palpitations [Unknown]
  - Drug hypersensitivity [Unknown]
  - Dizziness [Unknown]
  - Blood pressure increased [Unknown]
  - Chest discomfort [Unknown]

NARRATIVE: CASE EVENT DATE: 20151206
